FAERS Safety Report 22141299 (Version 1)
Quarter: 2023Q1

REPORT INFORMATION
  Report Type: Spontaneous
  Country: US (occurrence: US)
  Receive Date: 20230327
  Receipt Date: 20230327
  Transmission Date: 20230418
  Serious: No
  Sender: FDA-Public Use
  Company Number: US-BEH-2023156758

PATIENT
  Sex: Female
  Weight: 71.202 kg

DRUGS (2)
  1. HIZENTRA [Suspect]
     Active Substance: HUMAN IMMUNOGLOBULIN G
     Indication: Immunodeficiency common variable
     Dosage: 4 GRAM, QW
     Route: 058
  2. LASIX [Concomitant]
     Active Substance: FUROSEMIDE
     Dosage: UNK, TIW

REACTIONS (8)
  - Pollakiuria [Unknown]
  - Urine flow decreased [Unknown]
  - Urinary tract infection [Unknown]
  - Vomiting [Recovered/Resolved]
  - Insomnia [Recovered/Resolved]
  - Feeling abnormal [Recovered/Resolved]
  - Nephropathy [Unknown]
  - Hypoaesthesia [Unknown]
